FAERS Safety Report 8861189 (Version 1)
Quarter: 2012Q4

REPORT INFORMATION
  Report Type: Spontaneous
  Country: US (occurrence: None)
  Receive Date: 20121025
  Receipt Date: 20121025
  Transmission Date: 20130627
  Serious: Yes (Life-Threatening)
  Sender: FDA-Public Use
  Company Number: None

PATIENT
  Age: 17 Year
  Sex: Female

DRUGS (2)
  1. HUMIRA PEN 40 MG [Suspect]
     Indication: COGAN^S SYNDROME
     Route: 058
     Dates: start: 20120817
  2. HUMIRA PEN 40 MG [Suspect]
     Indication: COGAN^S SYNDROME
     Dates: start: 20120929

REACTIONS (3)
  - Headache [None]
  - Inflammatory marker increased [None]
  - Nuclear magnetic resonance imaging brain abnormal [None]
